FAERS Safety Report 6520172-2 (Version None)
Quarter: 2009Q4

REPORT INFORMATION
  Report Type: 
  Country: None (occurrence: None)
  Receive Date: 20091229
  Receipt Date: 20091217
  Transmission Date: 20100525
  Serious: Yes (Other)
  Sender: FDA-Public Use
  Company Number: US-JNJFOC-20091205301

PATIENT
  Sex: Female
  Weight: 81.65 kg

DRUGS (10)
  1. REMICADE [Suspect]
     Indication: RHEUMATOID ARTHRITIS
     Route: 042
     Dates: start: 20040801, end: 20081201
  2. CORTICOSTEROIDS [Concomitant]
     Indication: RHEUMATOID ARTHRITIS
     Dosage: 500 MG ONCE PER MONTH FOR 3 DAYS IN A ROW.
     Route: 042
  3. PREDNISONE [Concomitant]
     Indication: RHEUMATOID ARTHRITIS
  4. METHOTREXATE [Concomitant]
     Indication: RHEUMATOID ARTHRITIS
     Route: 050
  5. LEUCOVORIN CALCIUM [Concomitant]
     Indication: DRUG TOXICITY PROPHYLAXIS
  6. VITAMIN B-12 [Concomitant]
     Indication: HYPOVITAMINOSIS
  7. GABAPENTIN [Concomitant]
     Indication: NEURALGIA
     Dosage: 300 MG (1-2 CAPS) PER DAY
  8. ATACAND [Concomitant]
     Indication: HYPERTENSION
  9. PROPRANOLOL [Concomitant]
     Indication: HYPERTENSION
  10. BENADRYL [Concomitant]
     Indication: PREMEDICATION

REACTIONS (8)
  - CHOKING [None]
  - DRUG HYPERSENSITIVITY [None]
  - ERYTHEMA [None]
  - EYE MOVEMENT DISORDER [None]
  - FEELING HOT [None]
  - HYPERSOMNIA [None]
  - HYPERTENSION [None]
  - THROAT TIGHTNESS [None]
